FAERS Safety Report 9617533 (Version 1)
Quarter: 2013Q4

REPORT INFORMATION
  Report Type: Spontaneous
  Country: CN (occurrence: CN)
  Receive Date: 20131011
  Receipt Date: 20131011
  Transmission Date: 20140711
  Serious: Yes (Other)
  Sender: FDA-Public Use
  Company Number: CN-GLAXOSMITHKLINE-B0928558A

PATIENT
  Age: 66 Year
  Sex: Male
  Weight: 66 kg

DRUGS (1)
  1. ROSIGLITAZONE MALEATE [Suspect]
     Indication: INFECTION
     Route: 048
     Dates: start: 20120410, end: 20120410

REACTIONS (6)
  - Anaphylactic reaction [Recovered/Resolved]
  - Discomfort [Recovered/Resolved]
  - Dizziness [Recovered/Resolved]
  - Abdominal discomfort [Recovered/Resolved]
  - Urethral pain [Recovered/Resolved]
  - Dysuria [Recovered/Resolved]
